FAERS Safety Report 9046285 (Version 1)
Quarter: 2013Q1

REPORT INFORMATION
  Report Type: Spontaneous
  Country: US (occurrence: None)
  Receive Date: 20130128
  Receipt Date: 20130128
  Transmission Date: 20140127
  Serious: Yes (Life-Threatening, Hospitalization)
  Sender: FDA-Public Use
  Company Number: None

PATIENT
  Age: 63 Year
  Sex: Male
  Weight: 110.5 kg

DRUGS (3)
  1. FLUOXETINE [Suspect]
     Indication: DEPRESSION
     Route: 048
     Dates: start: 20120620, end: 20120926
  2. FLUOXETINE [Suspect]
     Indication: BIPOLAR I DISORDER
     Route: 048
     Dates: start: 20120620, end: 20120926
  3. DIVALPROEX [Suspect]
     Indication: BIPOLAR I DISORDER
     Dosage: 1500MG  HS  PO?07/19/2012  THRU  N/A
     Route: 048
     Dates: start: 20120719

REACTIONS (1)
  - Suicidal ideation [None]
